FAERS Safety Report 17501360 (Version 1)
Quarter: 2020Q1

REPORT INFORMATION
  Report Type: Spontaneous
  Country: SV (occurrence: SV)
  Receive Date: 20200305
  Receipt Date: 20200305
  Transmission Date: 20200409
  Serious: Yes (Disabling)
  Sender: FDA-Public Use
  Company Number: NVSC2020SV061114

PATIENT
  Age: 63 Year
  Sex: Female

DRUGS (3)
  1. NAKOM [Suspect]
     Active Substance: CARBIDOPA\LEVODOPA
     Indication: PARKINSONISM
     Dosage: 1 DF (50/200 MG), EVERY 8, 12 OR 24 HOURS DEPENDS OF THE NEED
     Route: 065
     Dates: start: 201903
  2. AMLODIPINE [Suspect]
     Active Substance: AMLODIPINE BESYLATE
     Indication: PRODUCT USED FOR UNKNOWN INDICATION
     Dosage: UNK UNK, Q24H
     Route: 065
  3. BIPERIDEN [Suspect]
     Active Substance: BIPERIDEN
     Indication: PRODUCT USED FOR UNKNOWN INDICATION
     Dosage: 2 MG, Q24H
     Route: 065

REACTIONS (8)
  - Amnesia [Unknown]
  - Hypophagia [Unknown]
  - Musculoskeletal stiffness [Unknown]
  - Disorientation [Unknown]
  - Therapeutic product effect decreased [Unknown]
  - Insomnia [Unknown]
  - Flatulence [Unknown]
  - Tremor [Unknown]

NARRATIVE: CASE EVENT DATE: 201903
